FAERS Safety Report 7024408-3 (Version None)
Quarter: 2010Q4

REPORT INFORMATION
  Report Type: 
  Country: None (occurrence: None)
  Receive Date: 20101001
  Receipt Date: 20100927
  Transmission Date: 20110411
  Serious: Yes (Hospitalization)
  Sender: FDA-Public Use
  Company Number: US-B.I. PHARMACEUTICALS,INC./RIDGEFIELD-2010-BP-10113BP

PATIENT
  Age: 56 Year
  Sex: Male
  Weight: 84.8 kg

DRUGS (1)
  1. SPIRIVA [Suspect]

REACTIONS (4)
  - ASTHMA [None]
  - DYSPNOEA [None]
  - HYPERSENSITIVITY [None]
  - OXYGEN SATURATION DECREASED [None]
